FAERS Safety Report 5805393-6 (Version None)
Quarter: 2008Q3

REPORT INFORMATION
  Report Type: 
  Country: None (occurrence: None)
  Receive Date: 20080709
  Receipt Date: 20080709
  Transmission Date: 20090109
  Serious: No
  Sender: FDA-Public Use
  Company Number: None

PATIENT
  Sex: Male
  Weight: 74.6167 kg

DRUGS (7)
  1. SINGULAIR [Suspect]
     Indication: ALLERGIC BRONCHITIS
     Dosage: 10MG DAILY P.O.
     Route: 048
     Dates: start: 20070708, end: 20070923
  2. LISINOPRIL [Concomitant]
  3. NOVOLOG [Concomitant]
  4. ARICEPT [Concomitant]
  5. FLORINEF [Concomitant]
  6. POTASSIUM CHLORIDE [Concomitant]
  7. DIGOXIN [Concomitant]

REACTIONS (1)
  - COMPLETED SUICIDE [None]
